FAERS Safety Report 13457252 (Version 2)
Quarter: 2017Q2

REPORT INFORMATION
  Report Type: Report from Study
  Country: None (occurrence: US)
  Receive Date: 20170419
  Receipt Date: 20170628
  Transmission Date: 20170830
  Serious: Yes (Hospitalization, Other)
  Sender: FDA-Public Use
  Company Number: US-ABBVIE-17K-163-1945799-00

PATIENT
  Age: 57 Year
  Sex: Female

DRUGS (1)
  1. HUMIRA [Suspect]
     Active Substance: ADALIMUMAB
     Indication: RHEUMATOID ARTHRITIS
     Route: 058
     Dates: start: 201505, end: 201703

REACTIONS (8)
  - Diverticulitis [Recovering/Resolving]
  - Nausea [Recovered/Resolved]
  - Renal disorder [Unknown]
  - Bladder disorder [Unknown]
  - Intestinal perforation [Recovering/Resolving]
  - Sepsis [Recovered/Resolved]
  - Hepatic vascular thrombosis [Recovered/Resolved]
  - Hepatic failure [Recovered/Resolved]

NARRATIVE: CASE EVENT DATE: 201703
